FAERS Safety Report 17840910 (Version 2)
Quarter: 2020Q4

REPORT INFORMATION
  Report Type: Spontaneous
  Country: CA (occurrence: CA)
  Receive Date: 20200529
  Receipt Date: 20201001
  Transmission Date: 20210113
  Serious: Yes (Hospitalization, Other)
  Sender: FDA-Public Use
  Company Number: CA-OTSUKA-2020_013093

PATIENT
  Sex: Female

DRUGS (1)
  1. ABILIFY [Suspect]
     Active Substance: ARIPIPRAZOLE
     Indication: PRODUCT USED FOR UNKNOWN INDICATION
     Dosage: UNK
     Route: 065

REACTIONS (8)
  - Suicide attempt [Unknown]
  - Psychotic disorder [Unknown]
  - Economic problem [Unknown]
  - Adverse reaction [Unknown]
  - Anhedonia [Unknown]
  - Personal relationship issue [Unknown]
  - Impaired quality of life [Unknown]
  - Aggression [Unknown]
